FAERS Safety Report 6496294-1 (Version None)
Quarter: 2009Q4

REPORT INFORMATION
  Report Type: 
  Country: None (occurrence: None)
  Receive Date: 20091209
  Receipt Date: 20091126
  Transmission Date: 20100525
  Serious: Yes (Other)
  Sender: FDA-Public Use
  Company Number: GB-EBEWE-1812MTX09

PATIENT
  Age: 54 Year
  Sex: Male

DRUGS (5)
  1. METHOTREXATE [Suspect]
     Indication: RHEUMATOID ARTHRITIS
     Dosage: 15 MG, QWEEK,  PO
     Route: 048
     Dates: start: 19990218
  2. ENBREL [Suspect]
     Indication: RHEUMATOID ARTHRITIS
     Dosage: 25 MG, TWICE WEEKLY, SC
     Route: 058
     Dates: start: 20050928
  3. CO-DYDRAMOL (PARACETAMOL) [Concomitant]
  4. ETODOLAC [Concomitant]
  5. PROZAC (FLUOXATINE) [Concomitant]

REACTIONS (2)
  - AURAL POLYP [None]
  - PSEUDOMONAS INFECTION [None]
